FAERS Safety Report 6471368-X (Version None)
Quarter: 2009Q4

REPORT INFORMATION
  Report Type: 
  Country: None (occurrence: None)
  Receive Date: 20091203
  Receipt Date: 20080211
  Transmission Date: 20100525
  Serious: Yes (Hospitalization)
  Sender: FDA-Public Use
  Company Number: TR-ELI_LILLY_AND_COMPANY-TR200802004494

PATIENT
  Age: 72 Year
  Sex: Female
  Weight: 65 kg

DRUGS (9)
  1. HUMULIN 70/30 [Suspect]
     Indication: TYPE 2 DIABETES MELLITUS
     Dosage: 10 IU, EACH MORNING
     Route: 058
     Dates: start: 20080101
  2. HUMULIN 70/30 [Suspect]
     Dosage: 6 IU, EACH EVENING
     Route: 058
     Dates: start: 20080101
  3. DELIX [Concomitant]
     Indication: HYPERTENSION
     Dosage: ONCE DAILY
     Route: 048
     Dates: start: 20080101
  4. BELOC ZOK [Concomitant]
     Indication: HYPERTENSION
     Dosage: ONCE DAILY
     Route: 048
     Dates: start: 20080101
  5. ISOSORBIDE MONONITRATE [Concomitant]
     Indication: CARDIAC DISORDER
     Dosage: ONCE DAILY
     Route: 048
     Dates: start: 20080101
  6. PLAVIX [Concomitant]
     Indication: CARDIAC DISORDER
     Dosage: ONCE DAILY
     Route: 048
     Dates: start: 20080101
  7. ATORVASTATIN [Concomitant]
     Indication: BLOOD CHOLESTEROL
     Dosage: ONCE DAILY
     Route: 048
     Dates: start: 20080101
  8. CORASPIN [Concomitant]
     Dosage: ONCE DAILY
     Route: 048
     Dates: start: 20080101
  9. ISORDIL [Concomitant]
     Indication: CARDIAC DISORDER
     Dosage: ONCE DAILY
     Route: 048
     Dates: start: 20080101

REACTIONS (2)
  - BLOOD GLUCOSE INCREASED [None]
  - VASCULAR GRAFT [None]
